FAERS Safety Report 7954090-X (Version None)
Quarter: 2011Q4

REPORT INFORMATION
  Report Type: 
  Country: None (occurrence: None)
  Receive Date: 20111202
  Receipt Date: 20111201
  Transmission Date: 20120403
  Serious: Yes (Death)
  Sender: FDA-Public Use
  Company Number: NL-B.I. PHARMACEUTICALS,INC./RIDGEFIELD-2011-NL-00378NL

PATIENT
  Age: 65 Year
  Sex: Male

DRUGS (2)
  1. DICLOFENAC SODIUM [Concomitant]
     Indication: MUSCULOSKELETAL DISCOMFORT
     Dosage: PRN
  2. PRADAXA [Suspect]
     Indication: ATRIAL FIBRILLATION
     Dosage: 300 MG
     Dates: start: 20111111

REACTIONS (5)
  - CARDIAC ANEURYSM [None]
  - ANEURYSM RUPTURED [None]
  - MYOCARDIAL INFARCTION [None]
  - AORTIC EMBOLUS [None]
  - ARRHYTHMIA [None]
